FAERS Safety Report 19085872 (Version 1)
Quarter: 2021Q2

REPORT INFORMATION
  Report Type: Spontaneous
  Country: GB (occurrence: GB)
  Receive Date: 20210402
  Receipt Date: 20210402
  Transmission Date: 20210717
  Serious: Yes (Life-Threatening)
  Sender: FDA-Public Use
  Company Number: GB-SUN PHARMACEUTICAL INDUSTRIES LTD-2021RR-289155

PATIENT
  Age: 38 Year
  Sex: Male
  Weight: 55 kg

DRUGS (1)
  1. TETRABENAZINE. [Suspect]
     Active Substance: TETRABENAZINE
     Indication: ILL-DEFINED DISORDER
     Dosage: 25MG TDS
     Route: 048

REACTIONS (2)
  - Suicide attempt [Unknown]
  - Medication error [Unknown]

NARRATIVE: CASE EVENT DATE: 20210318
